FAERS Safety Report 8382325-0 (Version None)
Quarter: 2012Q2

REPORT INFORMATION
  Report Type: 
  Country: None (occurrence: None)
  Receive Date: 20120524
  Receipt Date: 20120518
  Transmission Date: 20120825
  Serious: Yes (Life-Threatening, Hospitalization, Other)
  Sender: FDA-Public Use
  Company Number: GB-JNJFOC-20120507060

PATIENT
  Sex: Male

DRUGS (3)
  1. METOCLOPRAMIDE [Concomitant]
     Route: 065
  2. STELARA [Suspect]
     Indication: PSORIASIS
     Route: 058
     Dates: start: 20100413, end: 20111014
  3. ARAVA [Concomitant]
     Route: 048
     Dates: start: 20110920, end: 20120101

REACTIONS (4)
  - WEIGHT DECREASED [None]
  - HODGKIN'S DISEASE [None]
  - LYMPHADENOPATHY [None]
  - MALAISE [None]
